FAERS Safety Report 8888226 (Version 2)
Quarter: 2012Q4

REPORT INFORMATION
  Report Type: 
  Country: JP (occurrence: JP)
  Receive Date: 20121106
  Receipt Date: 20121121
  Transmission Date: 20130627
  Serious: Yes (Hospitalization)
  Sender: FDA-Public Use
  Company Number: JP-BAYER-2012-112585

PATIENT
  Age: 24 Year
  Sex: Female
  Weight: 50 kg

DRUGS (1)
  1. YAZ [Suspect]
     Indication: MENSES PAINFUL
     Dosage: UNK
     Route: 048
     Dates: start: 201210

REACTIONS (5)
  - Pharyngitis [None]
  - Pyrexia [None]
  - Decreased appetite [Recovered/Resolved]
  - Haematuria [None]
  - Depressive symptom [Recovered/Resolved]
